FAERS Safety Report 7288985-X (Version None)
Quarter: 2011Q1

REPORT INFORMATION
  Report Type: 
  Country: None (occurrence: None)
  Receive Date: 20110211
  Receipt Date: 20110201
  Transmission Date: 20110831
  Serious: Yes (Hospitalization)
  Sender: FDA-Public Use
  Company Number: PHHY2011US08778

PATIENT
  Age: 55 Year
  Sex: Male

DRUGS (7)
  1. METRONIDAZOLE [Suspect]
     Dosage: 500 MG, TID
  2. SULFASALAZINE [Suspect]
     Dosage: 500 MG, QID
  3. INSULIN GLARGINE [Concomitant]
  4. GABAPENTIN [Concomitant]
  5. LISINOPRIL [Concomitant]
  6. OMEPRAZOLE [Concomitant]
  7. FLUOXETINE [Concomitant]

REACTIONS (15)
  - ATAXIA [None]
  - VERTIGO [None]
  - BLOOD GLUCOSE INCREASED [None]
  - NEUROPATHY PERIPHERAL [None]
  - PARANASAL SINUS HYPERSECRETION [None]
  - VOMITING [None]
  - ENCEPHALOPATHY [None]
  - FALL [None]
  - SENSORY LOSS [None]
  - DYSARTHRIA [None]
  - NAUSEA [None]
  - PARAESTHESIA [None]
  - NERVOUS SYSTEM DISORDER [None]
  - SINUS CONGESTION [None]
  - BLOOD PRESSURE INCREASED [None]
